FAERS Safety Report 6904206-9 (Version None)
Quarter: 2010Q3

REPORT INFORMATION
  Report Type: 
  Country: None (occurrence: None)
  Receive Date: 20100804
  Receipt Date: 20090324
  Transmission Date: 20110219
  Serious: No
  Sender: FDA-Public Use
  Company Number: US-PFIZER INC-2009190194

PATIENT
  Sex: Male
  Weight: 90.7 kg

DRUGS (10)
  1. LYRICA [Suspect]
     Indication: PAIN IN EXTREMITY
     Dosage: 50 MG, 2X/DAY
     Dates: start: 20090209
  2. ACETYLSALICYLIC ACID [Concomitant]
     Dosage: UNK
  3. BUMETANIDE [Concomitant]
     Dosage: UNK
  4. HECTOROL [Concomitant]
     Dosage: UNK
  5. FOLTX [Concomitant]
     Dosage: UNK
  6. ISOSORBIDE [Concomitant]
     Dosage: UNK
  7. METOPROLOL [Concomitant]
     Dosage: UNK
  8. ZOCOR [Concomitant]
     Dosage: UNK
  9. VALSARTAN [Concomitant]
     Dosage: UNK
  10. DIPYRIDAMOLE [Concomitant]
     Dosage: UNK

REACTIONS (6)
  - DIZZINESS [None]
  - FATIGUE [None]
  - GAIT DISTURBANCE [None]
  - NAUSEA [None]
  - SOMNOLENCE [None]
  - STUPOR [None]
